FAERS Safety Report 7244028-5 (Version None)
Quarter: 2011Q1

REPORT INFORMATION
  Report Type: 
  Country: None (occurrence: None)
  Receive Date: 20110125
  Receipt Date: 20110121
  Transmission Date: 20110831
  Serious: Yes (Hospitalization, Disabling)
  Sender: FDA-Public Use
  Company Number: FI-MERCK-1010FIN00014

PATIENT
  Age: 69 Year
  Sex: Female

DRUGS (2)
  1. FOSAMAX PLUS D [Suspect]
     Indication: OSTEOPOROSIS
     Route: 048
     Dates: start: 20060301, end: 20090301
  2. CORTISONE [Concomitant]
     Indication: ASTHMA
     Route: 065

REACTIONS (1)
  - FEMUR FRACTURE [None]
